FAERS Safety Report 9416599 (Version 1)
Quarter: 2013Q3

REPORT INFORMATION
  Report Type: Spontaneous
  Country: US (occurrence: None)
  Receive Date: 20130719
  Receipt Date: 20130719
  Transmission Date: 20140515
  Serious: Yes (Other)
  Sender: FDA-Public Use
  Company Number: 2013AP006566

PATIENT
  Sex: Female

DRUGS (1)
  1. ANASTROZOLE [Suspect]
     Indication: PROPHYLAXIS
     Route: 048

REACTIONS (2)
  - Drug ineffective [None]
  - Breast cancer stage IV [None]
